FAERS Safety Report 8515257-5 (Version None)
Quarter: 2012Q3

REPORT INFORMATION
  Report Type: 
  Country: None (occurrence: None)
  Receive Date: 20120717
  Receipt Date: 20120710
  Transmission Date: 20120928
  Serious: Yes (Hospitalization)
  Sender: FDA-Public Use
  Company Number: US-B.I. PHARMACEUTICALS,INC./RIDGEFIELD-2012-BP-15379BP

PATIENT
  Sex: Male

DRUGS (5)
  1. PRADAXA [Suspect]
     Indication: ANTICOAGULANT THERAPY
     Route: 048
     Dates: start: 20110201
  2. LISINOPRIL [Concomitant]
     Indication: HYPERTENSION
     Route: 048
     Dates: start: 20110201
  3. CARVEDILOL [Concomitant]
     Indication: CARDIAC DISORDER
     Route: 048
     Dates: start: 20110201
  4. IBUPROFEN [Concomitant]
     Indication: PAIN
     Route: 048
     Dates: start: 20120701
  5. FUROSEMIDE [Concomitant]
     Indication: DIURETIC THERAPY
     Route: 048
     Dates: start: 20110201

REACTIONS (6)
  - PNEUMONIA [None]
  - BETA HAEMOLYTIC STREPTOCOCCAL INFECTION [None]
  - JOINT INJURY [None]
  - TENDONITIS [None]
  - FATIGUE [None]
  - ARTHRALGIA [None]
